FAERS Safety Report 10210013 (Version 2)
Quarter: 2014Q2

REPORT INFORMATION
  Report Type: Spontaneous
  Country: JP (occurrence: JP)
  Receive Date: 20140602
  Receipt Date: 20140606
  Transmission Date: 20141212
  Serious: Yes (Hospitalization)
  Sender: FDA-Public Use
  Company Number: JP-JNJFOC-20140515641

PATIENT
  Age: 64 Year
  Sex: Female

DRUGS (5)
  1. RISPERIDONE [Suspect]
     Indication: SCHIZOPHRENIA
     Route: 065
     Dates: end: 20131226
  2. FLUPHENAZINE DECANOATE [Suspect]
     Indication: SCHIZOPHRENIA
     Route: 065
     Dates: end: 20131226
  3. SODIUM VALPROATE [Concomitant]
     Indication: SCHIZOPHRENIA
     Route: 048
  4. RHYTHMY [Concomitant]
     Indication: SCHIZOPHRENIA
     Route: 048
  5. MAGMITT [Concomitant]
     Indication: CONSTIPATION
     Route: 048

REACTIONS (1)
  - Treatment noncompliance [Unknown]
